FAERS Safety Report 13368144 (Version 3)
Quarter: 2017Q2

REPORT INFORMATION
  Report Type: Spontaneous
  Country: CA (occurrence: CA)
  Receive Date: 20170324
  Receipt Date: 20170526
  Transmission Date: 20170830
  Serious: Yes (Hospitalization)
  Sender: FDA-Public Use
  Company Number: CA-AMGEN-CANSP2017042782

PATIENT
  Sex: Male

DRUGS (1)
  1. REPATHA [Suspect]
     Active Substance: EVOLOCUMAB
     Indication: TYPE IIA HYPERLIPIDAEMIA
     Dosage: 140 MG, Q2WK
     Route: 058
     Dates: start: 201603

REACTIONS (14)
  - Respiratory symptom [Not Recovered/Not Resolved]
  - Influenza like illness [Recovered/Resolved]
  - Blood creatinine increased [Unknown]
  - Musculoskeletal stiffness [Unknown]
  - Torticollis [Unknown]
  - Sinusitis [Not Recovered/Not Resolved]
  - Myalgia [Recovering/Resolving]
  - Nasopharyngitis [Not Recovered/Not Resolved]
  - Infection [Unknown]
  - Neck pain [Unknown]
  - Musculoskeletal pain [Unknown]
  - Back pain [Unknown]
  - Glomerular filtration rate decreased [Unknown]
  - Pyrexia [Recovered/Resolved]

NARRATIVE: CASE EVENT DATE: 2016
